FAERS Safety Report 25683159 (Version 1)
Quarter: 2025Q3

REPORT INFORMATION
  Report Type: Report from Study
  Country: IN (occurrence: IN)
  Receive Date: 20250814
  Receipt Date: 20250814
  Transmission Date: 20251020
  Serious: Yes (Death, Other)
  Sender: ALEXION PHARMACEUTICALS
  Company Number: IN-AstraZeneca-CH-00929929A

PATIENT
  Age: 58 Year
  Sex: Male
  Weight: 59 kg

DRUGS (1)
  1. DURVALUMAB [Suspect]
     Active Substance: DURVALUMAB
     Indication: Bile duct cancer
     Dosage: 1500 MILLIGRAM, Q3W

REACTIONS (9)
  - Blood bilirubin increased [Fatal]
  - Infection [Fatal]
  - Death [Fatal]
  - Heart rate increased [Fatal]
  - Liver function test increased [Fatal]
  - Communication disorder [Unknown]
  - Blood pressure decreased [Unknown]
  - Malignant neoplasm progression [Unknown]
  - Hepatic function abnormal [Unknown]

NARRATIVE: CASE EVENT DATE: 20250803
